FAERS Safety Report 24951926 (Version 4)
Quarter: 2025Q1

REPORT INFORMATION
  Report Type: Report from Study
  Country: CO (occurrence: CO)
  Receive Date: 20250210
  Receipt Date: 20250316
  Transmission Date: 20250408
  Serious: Yes (Disabling, Other)
  Sender: NOVARTIS
  Company Number: CO-002147023-NVSC2025CO022155

PATIENT
  Age: 56 Year
  Sex: Female
  Weight: 78 kg

DRUGS (2)
  1. KESIMPTA [Suspect]
     Active Substance: OFATUMUMAB
     Indication: Relapsing-remitting multiple sclerosis
     Dosage: 20 MG, QW
     Route: 058
     Dates: start: 20250205, end: 20250205
  2. KESIMPTA [Suspect]
     Active Substance: OFATUMUMAB
     Indication: Multiple sclerosis

REACTIONS (11)
  - Mobility decreased [Recovered/Resolved]
  - Asthenia [Recovering/Resolving]
  - Seizure [Recovered/Resolved]
  - Diplegia [Recovered/Resolved]
  - Pyrexia [Recovered/Resolved]
  - Chills [Recovered/Resolved]
  - Pain [Recovered/Resolved]
  - Headache [Recovered/Resolved]
  - Gait disturbance [Recovered/Resolved]
  - Adverse drug reaction [Recovering/Resolving]
  - Sensory loss [Unknown]

NARRATIVE: CASE EVENT DATE: 20250205
